FAERS Safety Report 5788681-1 (Version None)
Quarter: 2008Q2

REPORT INFORMATION
  Report Type: 
  Country: None (occurrence: None)
  Receive Date: 20080624
  Receipt Date: 20080609
  Transmission Date: 20081010
  Serious: Yes (Death, Hospitalization)
  Sender: FDA-Public Use
  Company Number: 2008001325

PATIENT
  Age: 69 Year
  Sex: Male

DRUGS (7)
  1. ERLOTINIB (ERLOTINIB) (TABLET) (ERLOTINIB) [Suspect]
     Indication: LUNG ADENOCARCINOMA
     Dosage: (150 MG, QD), ORAL
     Route: 048
     Dates: start: 20080117, end: 20080411
  2. FINIBAX [Suspect]
     Indication: PYREXIA
     Dosage: (0.5 GM, QD)
     Dates: start: 20080124, end: 20080128
  3. ADALAT CC [Concomitant]
  4. MUCODYNE (CARBOCISTEINE) [Concomitant]
  5. HOKUNALIN (TULOBUTEROL HYDROCHLORIDE) [Concomitant]
  6. THEOLONG (THEOPHYLLINE) [Concomitant]
  7. PREDONINE (PREDNISOLONE) [Concomitant]

REACTIONS (7)
  - C-REACTIVE PROTEIN INCREASED [None]
  - DISEASE PROGRESSION [None]
  - DYSPNOEA [None]
  - PRURITUS [None]
  - PYREXIA [None]
  - RASH [None]
  - RHINORRHOEA [None]
